FAERS Safety Report 9902822 (Version 1)
Quarter: 2014Q1

REPORT INFORMATION
  Report Type: Spontaneous
  Country: GB (occurrence: GB)
  Receive Date: 20140217
  Receipt Date: 20140217
  Transmission Date: 20141002
  Serious: Yes (Death, Other)
  Sender: FDA-Public Use
  Company Number: PHHY2014GB016826

PATIENT
  Age: 53 Year
  Sex: Male

DRUGS (14)
  1. CICLOSPORIN [Suspect]
     Indication: PROPHYLAXIS AGAINST GRAFT VERSUS HOST DISEASE
  2. RITUXIMAB [Suspect]
     Indication: GRAFT VERSUS HOST DISEASE IN LIVER
     Dosage: 375 MG/M2
  3. PREDNISOLONE [Suspect]
     Indication: CHEMOTHERAPY
     Dosage: 1 MG/KG
  4. CYCLOPHOSPHAMIDE [Suspect]
  5. ONCOVIN [Suspect]
  6. IFOSFAMIDE [Suspect]
     Indication: CHEMOTHERAPY
  7. EPIRUBICIN [Suspect]
     Indication: CHEMOTHERAPY
  8. ETOPOSIDE [Suspect]
  9. GEMCITABINE [Suspect]
     Indication: CHEMOTHERAPY
  10. METHYLPREDNISOLONE [Suspect]
     Indication: CHEMOTHERAPY
  11. CISPLATIN [Suspect]
     Indication: CHEMOTHERAPY
  12. ALEMTUZUMAB [Concomitant]
     Indication: T-CELL DEPLETION
  13. FLUDARABINE [Concomitant]
     Indication: T-CELL DEPLETION
  14. MELPHALAN [Concomitant]
     Indication: T-CELL DEPLETION

REACTIONS (15)
  - Disease progression [Fatal]
  - Coagulopathy [Fatal]
  - Peripheral T-cell lymphoma unspecified recurrent [Fatal]
  - Splenomegaly [Fatal]
  - Pancytopenia [Fatal]
  - Anaemia [Fatal]
  - Haemoglobin decreased [Fatal]
  - Multi-organ failure [Fatal]
  - Acute graft versus host disease in liver [Unknown]
  - Hepatic function abnormal [Unknown]
  - Hyperbilirubinaemia [Unknown]
  - Post transplant lymphoproliferative disorder [Unknown]
  - Epstein-Barr virus infection [Unknown]
  - Drug ineffective [Unknown]
  - No therapeutic response [Unknown]
